FAERS Safety Report 9160348 (Version 1)
Quarter: 2013Q1

REPORT INFORMATION
  Report Type: Spontaneous
  Country: IT (occurrence: None)
  Receive Date: 20130220
  Receipt Date: 20130220
  Transmission Date: 20140127
  Serious: Yes (Other)
  Sender: FDA-Public Use
  Company Number: AUR-APL-2013-01386

PATIENT
  Age: 69 Year
  Sex: Male

DRUGS (1)
  1. AMOXICILLIN (AMOXICILLIN) [Suspect]
     Indication: DERMAL CYST
     Route: 048
     Dates: start: 20120711, end: 20120711

REACTIONS (3)
  - Angioedema [None]
  - Face oedema [None]
  - Lip oedema [None]
